FAERS Safety Report 22196925 (Version 5)
Quarter: 2023Q2

REPORT INFORMATION
  Report Type: Spontaneous
  Country: US (occurrence: US)
  Receive Date: 20230411
  Receipt Date: 20230525
  Transmission Date: 20230722
  Serious: No
  Sender: FDA-Public Use
  Company Number: US-PFIZER INC-202300137473

PATIENT
  Age: 12 Year
  Sex: Female
  Weight: 43.537 kg

DRUGS (1)
  1. GENOTROPIN [Suspect]
     Active Substance: SOMATROPIN
     Indication: Growth hormone deficiency
     Dosage: 2 MG, 1X/DAY
     Dates: start: 202301

REACTIONS (2)
  - Device breakage [Unknown]
  - Wrong technique in device usage process [Unknown]
